FAERS Safety Report 17762825 (Version 2)
Quarter: 2020Q3

REPORT INFORMATION
  Report Type: Spontaneous
  Country: US (occurrence: US)
  Receive Date: 20200508
  Receipt Date: 20200716
  Transmission Date: 20201102
  Serious: Yes (Hospitalization)
  Sender: FDA-Public Use
  Company Number: US-JNJFOC-20200500380

PATIENT
  Age: 16 Year
  Sex: Female
  Weight: 57.66 kg

DRUGS (1)
  1. STELARA [Suspect]
     Active Substance: USTEKINUMAB
     Indication: PSORIASIS
     Dosage: STARTED DOSE AND THEN 30 DAYS LATER ANOTHER DOSE, THEN WAS GETTING IT EVERY THREE MONTHS
     Route: 058
     Dates: end: 201912

REACTIONS (2)
  - Appendicitis [Unknown]
  - Psoriasis [Recovering/Resolving]

NARRATIVE: CASE EVENT DATE: 20191016
